FAERS Safety Report 21466538 (Version 2)
Quarter: 2022Q4

REPORT INFORMATION
  Report Type: Spontaneous
  Country: AU (occurrence: AU)
  Receive Date: 20221017
  Receipt Date: 20221118
  Transmission Date: 20230113
  Serious: Yes (Other)
  Sender: FDA-Public Use
  Company Number: AU-MYLANLABS-2022M1084401

PATIENT
  Age: 57 Year
  Sex: Male

DRUGS (6)
  1. CLOZARIL [Suspect]
     Active Substance: CLOZAPINE
     Indication: Schizophrenia
     Dosage: 200 MILLIGRAM, HS (AT NIGHT)
     Route: 048
     Dates: start: 20060323
  2. ARIPIPRAZOLE [Concomitant]
     Active Substance: ARIPIPRAZOLE
     Indication: Antipsychotic therapy
     Dosage: 10 MILLIGRAM, AM (AT MORNING)
     Route: 065
  3. LIPITOR [Concomitant]
     Active Substance: ATORVASTATIN CALCIUM
     Indication: Blood cholesterol abnormal
     Dosage: 40 MILLIGRAM, HS (AT NIGHT)
     Route: 065
  4. Metformin sr [Concomitant]
     Indication: Diabetes mellitus
     Dosage: 2000 MILLIGRAM, HS (AT NIGHT)
     Route: 065
  5. OMEPRAZOLE [Concomitant]
     Active Substance: OMEPRAZOLE
     Indication: Gastrooesophageal reflux disease
     Dosage: 20 MILLIGRAM
     Route: 065
  6. MICARDIS [Concomitant]
     Active Substance: TELMISARTAN
     Dosage: UNK UNK, HS (1/2 TABLET NOCTE)
     Route: 065

REACTIONS (1)
  - COVID-19 [Recovering/Resolving]

NARRATIVE: CASE EVENT DATE: 20220801
